FAERS Safety Report 7291078-9 (Version None)
Quarter: 2011Q1

REPORT INFORMATION
  Report Type: 
  Country: None (occurrence: None)
  Receive Date: 20110214
  Receipt Date: 20090831
  Transmission Date: 20110831
  Serious: Yes (Other)
  Sender: FDA-Public Use
  Company Number: US-ASTRAZENECA-2009SE10958

PATIENT
  Age: 58 Year
  Sex: Female
  Weight: 52.6 kg

DRUGS (2)
  1. MULTIVITAMIN [Concomitant]
  2. NEXIUM [Suspect]
     Indication: GASTROOESOPHAGEAL REFLUX DISEASE
     Route: 048
     Dates: start: 20030101

REACTIONS (6)
  - GASTRIC DISORDER [None]
  - VOMITING [None]
  - BREAST CANCER [None]
  - OSTEOPOROSIS [None]
  - DIARRHOEA [None]
  - GALLBLADDER OPERATION [None]
